FAERS Safety Report 25066677 (Version 4)
Quarter: 2025Q4

REPORT INFORMATION
  Report Type: Spontaneous
  Country: BR (occurrence: BR)
  Receive Date: 20250312
  Receipt Date: 20251218
  Transmission Date: 20260118
  Serious: Yes (Death, Hospitalization)
  Sender: MERCK SHARP & DOHME LLC
  Company Number: US-009507513-2263087

PATIENT
  Age: 61 Year
  Sex: Male
  Weight: 89.5 kg

DRUGS (6)
  1. KEYTRUDA [Suspect]
     Active Substance: PEMBROLIZUMAB
     Indication: Squamous cell carcinoma of head and neck
     Dosage: 200 MG, Q3W
     Route: 042
     Dates: start: 20240509, end: 20241226
  2. KEYTRUDA [Suspect]
     Active Substance: PEMBROLIZUMAB
     Indication: Squamous cell carcinoma of head and neck
     Dosage: 200 MG, Q3W
     Route: 042
     Dates: start: 20241226, end: 20241226
  3. DICLOFENAC [Concomitant]
     Active Substance: DICLOFENAC
     Indication: Arthralgia
     Route: 048
     Dates: start: 20241012
  4. TRAMADOL [Concomitant]
     Active Substance: TRAMADOL
     Indication: Pelvic pain
     Route: 048
     Dates: start: 20241024
  5. MESALAMINE [Concomitant]
     Active Substance: MESALAMINE
     Indication: Diverticulum intestinal
     Route: 048
     Dates: start: 20240529
  6. PREGABALIN [Concomitant]
     Active Substance: PREGABALIN
     Indication: Pelvic pain
     Route: 048
     Dates: start: 20241024

REACTIONS (2)
  - Endocarditis bacterial [Fatal]
  - Septic pulmonary embolism [Fatal]

NARRATIVE: CASE EVENT DATE: 20250109
